FAERS Safety Report 7034822-8 (Version None)
Quarter: 2010Q4

REPORT INFORMATION
  Report Type: 
  Country: None (occurrence: None)
  Receive Date: 20101008
  Receipt Date: 20100928
  Transmission Date: 20110411
  Serious: Yes (Other)
  Sender: FDA-Public Use
  Company Number: US-ROCHE-691747

PATIENT
  Sex: Male
  Weight: 83.9 kg

DRUGS (7)
  1. ACCUTANE [Suspect]
     Indication: ACNE
     Route: 065
     Dates: start: 20050302, end: 20050508
  2. SOTRET [Suspect]
     Indication: ACNE
     Dosage: STRENGTH: 20 MG AND 40 MG
     Route: 048
     Dates: start: 20050102
  3. SOTRET [Suspect]
     Route: 048
     Dates: start: 20050201, end: 20050302
  4. SOTRET [Suspect]
     Route: 048
     Dates: start: 20050516, end: 20050616
  5. BENZOYL PEROXIDE WASH [Concomitant]
     Indication: ACNE
  6. BENZACLIN [Concomitant]
     Indication: ACNE
  7. DIFFERIN [Concomitant]
     Indication: ACNE

REACTIONS (8)
  - ANAL FISSURE [None]
  - ANKYLOSING SPONDYLITIS [None]
  - BLOOD TRIGLYCERIDES INCREASED [None]
  - CHEILITIS [None]
  - COLITIS [None]
  - INFLAMMATORY BOWEL DISEASE [None]
  - LIP DRY [None]
  - SACROILIITIS [None]
